FAERS Safety Report 18609422 (Version 4)
Quarter: 2021Q1

REPORT INFORMATION
  Report Type: Spontaneous
  Country: CA (occurrence: CA)
  Receive Date: 20201214
  Receipt Date: 20210305
  Transmission Date: 20210419
  Serious: Yes (Other)
  Sender: FDA-Public Use
  Company Number: CA-CELLTRION INC.-2020CA022114

PATIENT

DRUGS (13)
  1. HYDROCORTISONE. [Concomitant]
     Active Substance: HYDROCORTISONE
     Indication: PREMEDICATION
     Dosage: 200 MG
     Route: 042
     Dates: start: 20200430, end: 20200430
  2. INFLECTRA [Suspect]
     Active Substance: INFLIXIMAB-DYYB
     Dosage: 1100 MG, EVERY 5 WEEKS
     Route: 042
     Dates: start: 20200602
  3. INFLECTRA [Suspect]
     Active Substance: INFLIXIMAB-DYYB
     Dosage: 1100 MG, EVERY 5 WEEKS
     Route: 042
     Dates: start: 20200710
  4. INFLECTRA [Suspect]
     Active Substance: INFLIXIMAB-DYYB
     Dosage: 1100 MG, EVERY 5 WEEKS
     Route: 042
     Dates: start: 20200814
  5. INFLECTRA [Suspect]
     Active Substance: INFLIXIMAB-DYYB
     Dosage: 1100 MG, EVERY 5 WEEKS
     Route: 042
     Dates: start: 20201023
  6. ACETAMINOPHEN. [Concomitant]
     Active Substance: ACETAMINOPHEN
     Dosage: 975 MG
     Route: 048
     Dates: start: 20200814, end: 20200814
  7. INFLECTRA [Suspect]
     Active Substance: INFLIXIMAB-DYYB
     Dosage: 1100 MG, EVERY 5 WEEKS
     Route: 042
     Dates: start: 20201229
  8. INFLECTRA [Suspect]
     Active Substance: INFLIXIMAB-DYYB
     Indication: CROHN^S DISEASE
     Dosage: 1100 MG, EVERY 6 WEEKS
     Route: 042
     Dates: start: 20200430, end: 20200430
  9. INFLECTRA [Suspect]
     Active Substance: INFLIXIMAB-DYYB
     Dosage: 1100 MG, EVERY 5 WEEKS
     Route: 042
     Dates: start: 20201127
  10. HYDROCORTISONE. [Concomitant]
     Active Substance: HYDROCORTISONE
     Dosage: 200 MG
     Route: 042
     Dates: start: 20200814, end: 20200814
  11. INFLECTRA [Suspect]
     Active Substance: INFLIXIMAB-DYYB
     Dosage: 1100 MG, EVERY 6 WEEKS
     Route: 042
     Dates: start: 20200430, end: 20200430
  12. INFLECTRA [Suspect]
     Active Substance: INFLIXIMAB-DYYB
     Dosage: 1100 MG, EVERY 5 WEEKS
     Route: 042
     Dates: start: 20201023
  13. ACETAMINOPHEN. [Concomitant]
     Active Substance: ACETAMINOPHEN
     Indication: PREMEDICATION
     Dosage: 975 MG
     Route: 048
     Dates: start: 20200430, end: 20200430

REACTIONS (5)
  - Off label use [Unknown]
  - Uveitis [Unknown]
  - Oxygen saturation decreased [Unknown]
  - Blood pressure increased [Unknown]
  - Drug level decreased [Unknown]

NARRATIVE: CASE EVENT DATE: 2020
